FAERS Safety Report 11431825 (Version 1)
Quarter: 2015Q3

REPORT INFORMATION
  Report Type: Spontaneous
  Country: US (occurrence: US)
  Receive Date: 20150828
  Receipt Date: 20150828
  Transmission Date: 20151125
  Serious: No
  Sender: FDA-Public Use
  Company Number: US-SEBELA IRELAND LIMITED-2014SEB00087

PATIENT
  Sex: Female

DRUGS (10)
  1. PATADAY (OLOPATADINE HYDROCHLORIDE) [Concomitant]
  2. THYROXINE (LEVOTHYROXINE SODIUM) [Concomitant]
     Active Substance: LEVOTHYROXINE
  3. CALCITONIN-SALMON [Suspect]
     Active Substance: CALCITONIN SALMON
     Dosage: UNK
  4. VESICARE [Concomitant]
     Active Substance: SOLIFENACIN SUCCINATE
  5. AMLODIPINE [Concomitant]
     Active Substance: AMLODIPINE BESYLATE
  6. PANTOPRAZOLE [Concomitant]
     Active Substance: PANTOPRAZOLE SODIUM
  7. TENORMIN [Concomitant]
     Active Substance: ATENOLOL
  8. ATENOLOL. [Concomitant]
     Active Substance: ATENOLOL
  9. VITAMIN D [Concomitant]
     Active Substance: CHOLECALCIFEROL
  10. CLOPIDOGREL BISULFATE. [Concomitant]
     Active Substance: CLOPIDOGREL BISULFATE

REACTIONS (4)
  - Rhinorrhoea [Unknown]
  - Coeliac disease [Unknown]
  - Gastrointestinal disorder [Unknown]
  - Cow^s milk intolerance [Unknown]
